FAERS Safety Report 10368711 (Version 1)
Quarter: 2014Q1

REPORT INFORMATION
  Report Type: Spontaneous
  Country: US (occurrence: None)
  Receive Date: 20140306
  Receipt Date: 20140306
  Transmission Date: 20141002
  Serious: Yes (Other)
  Sender: FDA-Public Use
  Company Number: 163-21880-13071834

PATIENT
  Age: 84 Year
  Sex: Female

DRUGS (6)
  1. REVLIMID (LENALIDOMIDE) (CAPSULES) [Suspect]
     Indication: PLASMA CELL MYELOMA
     Route: 048
     Dates: start: 20130607, end: 201307
  2. WARFARIN [Concomitant]
  3. AMLODIPINE [Suspect]
  4. FUROSEMIDE [Concomitant]
  5. FEXOFENADINE [Concomitant]
  6. ACYCLOVIR (ACICLOVIR) [Concomitant]

REACTIONS (1)
  - Hypersensitivity [None]
